FAERS Safety Report 6030308-8 (Version None)
Quarter: 2009Q1

REPORT INFORMATION
  Report Type: 
  Country: None (occurrence: None)
  Receive Date: 20090107
  Receipt Date: 20081224
  Transmission Date: 20090719
  Serious: Yes (Death, Other)
  Sender: FDA-Public Use
  Company Number: JP-PFIZER INC-2008159528

PATIENT
  Age: 72 Year
  Sex: Male

DRUGS (2)
  1. FARMORUBICIN [Suspect]
     Indication: HEPATIC NEOPLASM MALIGNANT RECURRENT
     Dosage: 30 MG, UNK
     Route: 042
  2. LIPIODOL [Concomitant]
     Indication: HEPATIC NEOPLASM MALIGNANT RECURRENT
     Dosage: 10 ML, UNK

REACTIONS (2)
  - HEPATIC FAILURE [None]
  - TUMOUR LYSIS SYNDROME [None]
